FAERS Safety Report 4263819-6 (Version None)
Quarter: 2004Q1

REPORT INFORMATION
  Report Type: 
  Country: None (occurrence: None)
  Receive Date: 20040105
  Receipt Date: 20040105
  Transmission Date: 20041129
  Serious: No
  Sender: FDA-Public Use
  Company Number: None

PATIENT
  Age: 8 Year
  Sex: 0

DRUGS (1)
  1. STRATTERA [Suspect]
     Indication: ATTENTION DEFICIT/HYPERACTIVITY DISORDER
     Dosage: 25 MG/ 24-48 HOURS

REACTIONS (4)
  - ABNORMAL BEHAVIOUR [None]
  - ELEVATED MOOD [None]
  - IRRITABILITY [None]
  - OPPOSITIONAL DEFIANT DISORDER [None]
